FAERS Safety Report 11567526 (Version 1)
Quarter: 2015Q3

REPORT INFORMATION
  Report Type: Spontaneous
  Country: US (occurrence: US)
  Receive Date: 20150916
  Receipt Date: 20150916
  Transmission Date: 20151125
  Serious: No
  Sender: FDA-Public Use
  Company Number: US-ELI_LILLY_AND_COMPANY-US200907005515

PATIENT
  Sex: Female

DRUGS (1)
  1. FORTEO [Suspect]
     Active Substance: TERIPARATIDE
     Dates: start: 20090707

REACTIONS (8)
  - Head discomfort [Not Recovered/Not Resolved]
  - Movement disorder [Recovered/Resolved]
  - Stress [Not Recovered/Not Resolved]
  - Feeling abnormal [Recovered/Resolved]
  - Blood glucose increased [Not Recovered/Not Resolved]
  - Irritability [Unknown]
  - Muscle spasms [Not Recovered/Not Resolved]
  - Dysstasia [Recovered/Resolved]

NARRATIVE: CASE EVENT DATE: 200907
